FAERS Safety Report 8167312-X (Version None)
Quarter: 2012Q1

REPORT INFORMATION
  Report Type: 
  Country: None (occurrence: None)
  Receive Date: 20120227
  Receipt Date: 20120221
  Transmission Date: 20120608
  Serious: Yes (Death, Other)
  Sender: FDA-Public Use
  Company Number: US-PFIZER INC-2012045793

PATIENT
  Sex: Female

DRUGS (1)
  1. REVATIO [Suspect]
     Indication: OBSTRUCTIVE AIRWAYS DISORDER
     Dosage: 40 MG, 3X/DAY (40MG TID)

REACTIONS (1)
  - CARDIAC FAILURE [None]
